FAERS Safety Report 10229342 (Version 8)
Quarter: 2018Q4

REPORT INFORMATION
  Report Type: Report from Study
  Country: BE (occurrence: BE)
  Receive Date: 20140611
  Receipt Date: 20181005
  Transmission Date: 20190204
  Serious: Yes (Hospitalization)
  Sender: FDA-Public Use
  Company Number: BE-ROCHE-1387963

PATIENT
  Age: 57 Year
  Sex: Female

DRUGS (56)
  1. DEXAMETHASONE. [Concomitant]
     Active Substance: DEXAMETHASONE
     Route: 065
     Dates: start: 20121001
  2. DEANXIT [Concomitant]
     Active Substance: FLUPENTIXOL DIHYDROCHLORIDE\MELITRACEN HYDROCHLORIDE
  3. OXYNORM [Concomitant]
     Active Substance: OXYCODONE HYDROCHLORIDE
     Dosage: 1 TABLET WHEN NECESSARY
     Route: 065
     Dates: start: 20170120
  4. CONTRAMAL RETARD [Concomitant]
     Route: 065
     Dates: start: 20170115, end: 20170117
  5. TRASTUZUMAB. [Suspect]
     Active Substance: TRASTUZUMAB
     Indication: HER-2 POSITIVE BREAST CANCER
     Dosage: LOADING DOSE
     Route: 042
     Dates: start: 20121002
  6. ZYRTEC [Concomitant]
     Active Substance: CETIRIZINE HYDROCHLORIDE
     Route: 065
     Dates: start: 20121001
  7. CALCIUM CARBONATE. [Concomitant]
     Active Substance: CALCIUM CARBONATE
     Route: 065
     Dates: start: 20121016
  8. FERROGRAD [Concomitant]
     Active Substance: FERROUS SULFATE
     Route: 065
     Dates: start: 20140401
  9. LORATADINE. [Concomitant]
     Active Substance: LORATADINE
     Dosage: 1 TABLET PRN
     Route: 065
     Dates: start: 20151006
  10. BRAUNOL [Concomitant]
     Active Substance: POVIDONE-IODINE
     Dosage: 10 ML PRN
     Route: 065
     Dates: start: 20170130
  11. ONDANSETRON [Concomitant]
     Active Substance: ONDANSETRON
     Dosage: WHEN NECESSARY
     Route: 065
     Dates: start: 20170129, end: 20170130
  12. FLAGYL [Concomitant]
     Active Substance: METRONIDAZOLE\METRONIDAZOLE HYDROCHLORIDE
     Route: 065
     Dates: start: 20170129
  13. PARACETAMOL [Concomitant]
     Active Substance: ACETAMINOPHEN
     Route: 065
     Dates: start: 20170129, end: 20180210
  14. ZOLPIDEM [Concomitant]
     Active Substance: ZOLPIDEM\ZOLPIDEM TARTRATE
     Route: 065
  15. DAFALGAN [Concomitant]
     Active Substance: ACETAMINOPHEN
     Route: 065
     Dates: start: 20121230
  16. INNOHEP [Concomitant]
     Active Substance: TINZAPARIN SODIUM
     Dosage: 14000 UNITS
     Route: 065
     Dates: start: 20121128
  17. ZITROMAX [Concomitant]
     Active Substance: AZITHROMYCIN
     Route: 065
     Dates: start: 20121230, end: 20130104
  18. IMODIUM [Concomitant]
     Active Substance: LOPERAMIDE HYDROCHLORIDE
     Route: 065
     Dates: start: 20130208, end: 20130208
  19. BEFACT FORTE [Concomitant]
     Dosage: 1 TABLET
     Route: 065
     Dates: start: 20130207
  20. NASONEX [Concomitant]
     Active Substance: MOMETASONE FUROATE
     Dosage: 3 UNITS
     Route: 065
     Dates: start: 201602
  21. TARADYL [Concomitant]
     Active Substance: KETOROLAC\KETOROLAC TROMETHAMINE
     Dosage: WHEN NECESSARY
     Route: 065
     Dates: start: 20170129, end: 20170130
  22. NASONEX [Concomitant]
     Active Substance: MOMETASONE FUROATE
     Route: 065
     Dates: start: 201602
  23. PARACETAMOL [Concomitant]
     Active Substance: ACETAMINOPHEN
     Route: 065
     Dates: start: 20170115
  24. D-CURE [Concomitant]
     Active Substance: CHOLECALCIFEROL
     Dosage: 25000 E/ML
     Route: 065
     Dates: start: 2012
  25. STILNOCT [Concomitant]
     Active Substance: ZOLPIDEM TARTRATE
     Dosage: 1 TABLET
     Route: 065
     Dates: start: 20130207, end: 20130221
  26. ELOCOM [Concomitant]
     Active Substance: MOMETASONE FUROATE
     Route: 065
     Dates: start: 20131126
  27. PANTOMED (BELGIUM) [Concomitant]
     Route: 065
     Dates: start: 20170129, end: 20170210
  28. PLASMALYTE [Concomitant]
     Active Substance: ELECTROLYTES NOS
     Route: 065
     Dates: start: 20170129, end: 20170130
  29. LORATADINE. [Concomitant]
     Active Substance: LORATADINE
     Dosage: 1 TABLET
     Route: 065
     Dates: start: 20161006
  30. XGEVA [Concomitant]
     Active Substance: DENOSUMAB
     Route: 065
     Dates: start: 20121016
  31. TAVANIC [Concomitant]
     Active Substance: LEVOFLOXACIN
     Route: 065
     Dates: start: 20130702
  32. AMOXICILLINE [Concomitant]
     Active Substance: AMOXICILLIN
     Route: 065
     Dates: start: 20121209, end: 20121213
  33. AVELOX [Concomitant]
     Active Substance: MOXIFLOXACIN HYDROCHLORIDE
     Route: 065
     Dates: start: 20130207, end: 20130207
  34. ACETYLCYSTEINE. [Concomitant]
     Active Substance: ACETYLCYSTEINE
     Route: 065
     Dates: start: 20140106
  35. IBUPROFEN. [Concomitant]
     Active Substance: IBUPROFEN
     Route: 065
     Dates: start: 20170115, end: 20170126
  36. AACIDEXAM [Concomitant]
     Active Substance: DEXAMETHASONE
     Dosage: WHEN NECESSARY
     Route: 065
     Dates: start: 20170129, end: 20170130
  37. LYRICA [Concomitant]
     Active Substance: PREGABALIN
     Indication: NEURALGIA
     Route: 065
  38. INNOHEP [Concomitant]
     Active Substance: TINZAPARIN SODIUM
     Dosage: 3500 E
     Route: 065
     Dates: start: 20121127
  39. POTASSIUM CHLORIDE. [Concomitant]
     Active Substance: POTASSIUM CHLORIDE
     Route: 065
     Dates: start: 20130206, end: 20130221
  40. GELOFUSINE (BELGIUM) [Concomitant]
     Dosage: 1 UNIT
     Route: 065
     Dates: start: 20130207, end: 20130207
  41. ONBREZ [Concomitant]
     Active Substance: INDACATEROL
     Route: 065
     Dates: start: 201410
  42. DUROGESIC [Concomitant]
     Active Substance: FENTANYL
     Route: 065
     Dates: start: 20170121
  43. PERTUZUMAB. [Suspect]
     Active Substance: PERTUZUMAB
     Indication: HER-2 POSITIVE BREAST CANCER
     Dosage: LOADING DOSE
     Route: 042
     Dates: start: 20121002
  44. PACLITAXEL. [Suspect]
     Active Substance: PACLITAXEL
     Indication: HER-2 POSITIVE BREAST CANCER
     Dosage: DATE OF LAST DOSE PRIOR TO SAE: 22/JAN/2013
     Route: 042
     Dates: start: 20121002
  45. LEVOCETIRIZINE [Concomitant]
     Active Substance: LEVOCETIRIZINE
     Route: 065
  46. XGEVA [Concomitant]
     Active Substance: DENOSUMAB
     Route: 065
     Dates: start: 20120816
  47. PERTUZUMAB. [Suspect]
     Active Substance: PERTUZUMAB
     Dosage: MAINTENANCE DOSE; DATE OF LAST DOSE PRIOR TO SAE: 01/APR/2014
     Route: 042
     Dates: start: 20121023
  48. TRASTUZUMAB. [Suspect]
     Active Substance: TRASTUZUMAB
     Dosage: MAINTENANCE DOSE;?DATE OF LAST DOSE PRIOR TO SAE: 01/APR/2014
     Route: 042
     Dates: start: 20121023
  49. AVELOX [Concomitant]
     Active Substance: MOXIFLOXACIN HYDROCHLORIDE
     Route: 065
     Dates: start: 20121214, end: 20121216
  50. AVELOX [Concomitant]
     Active Substance: MOXIFLOXACIN HYDROCHLORIDE
     Route: 065
     Dates: start: 20121226, end: 20121230
  51. VANCOCIN [Concomitant]
     Active Substance: VANCOMYCIN HYDROCHLORIDE
     Route: 065
     Dates: start: 20130207, end: 20130221
  52. FERROGRADUMET [Concomitant]
     Active Substance: FERROUS SULFATE
     Dosage: 1 TABLET
     Route: 065
     Dates: start: 20140401, end: 20141027
  53. DALACIN [Concomitant]
     Active Substance: CLINDAMYCIN
     Route: 065
     Dates: start: 20170115, end: 20170210
  54. INJECTAFER [Concomitant]
     Active Substance: FERRIC CARBOXYMALTOSE
     Route: 065
     Dates: start: 20180326, end: 20180326
  55. PERIO AID (CETYLPYRIDINIUM CHLORIDE/CHLORHEXIDINE GLUCONATE) [Concomitant]
     Dosage: 10 ML PRN
     Route: 065
     Dates: start: 20170121
  56. TAVANIC [Concomitant]
     Active Substance: LEVOFLOXACIN
     Route: 065
     Dates: start: 20170626, end: 20170705

REACTIONS (1)
  - Dyspnoea [Recovered/Resolved]

NARRATIVE: CASE EVENT DATE: 20140414
